FAERS Safety Report 23293708 (Version 1)
Quarter: 2023Q4

REPORT INFORMATION
  Report Type: Spontaneous
  Country: DE (occurrence: DE)
  Receive Date: 20231213
  Receipt Date: 20231213
  Transmission Date: 20240110
  Serious: Yes (Other)
  Sender: FDA-Public Use
  Company Number: DE-MYLANLABS-2023M1122563

PATIENT
  Sex: Male

DRUGS (1)
  1. BUDESONIDE [Suspect]
     Active Substance: BUDESONIDE
     Indication: Asthma
     Dosage: UNK
     Route: 055
     Dates: start: 202311

REACTIONS (2)
  - Drug ineffective [Unknown]
  - Product quality issue [None]

NARRATIVE: CASE EVENT DATE: 20231101
